FAERS Safety Report 10645533 (Version 1)
Quarter: 2014Q4

REPORT INFORMATION
  Report Type: Spontaneous
  Country: PH (occurrence: None)
  Receive Date: 20141209
  Receipt Date: 20141209
  Transmission Date: 20150529
  Serious: Yes (Death, Hospitalization, Other)
  Sender: FDA-Public Use
  Company Number: FK201405822

PATIENT
  Age: 31 Year
  Sex: Male

DRUGS (1)
  1. METHYLPREDNISOLONE. [Suspect]
     Active Substance: METHYLPREDNISOLONE
     Indication: PRODUCT USED FOR UNKNOWN INDICATION
     Dosage: PULSE THERAPY?INTRAVENOUS (NOT OTHERWISE SPECIFIED)
     Route: 042

REACTIONS (10)
  - Petechiae [None]
  - Anaemia [None]
  - Abdominal wall abscess [None]
  - Hypoalbuminaemia [None]
  - Acute respiratory distress syndrome [None]
  - Strongyloidiasis [None]
  - Groin abscess [None]
  - Pneumonia [None]
  - Purpura [None]
  - Eosinopenia [None]
